FAERS Safety Report 9462576 (Version 3)
Quarter: 2013Q4

REPORT INFORMATION
  Report Type: Spontaneous
  Country: JP (occurrence: JP)
  Receive Date: 20130816
  Receipt Date: 20131107
  Transmission Date: 20140711
  Serious: Yes (Hospitalization, Other)
  Sender: FDA-Public Use
  Company Number: JP-PFIZER INC-2013210819

PATIENT
  Age: 53 Year
  Sex: Female
  Weight: 50.6 kg

DRUGS (9)
  1. UNASYN-S [Suspect]
     Indication: PNEUMONIA ASPIRATION
     Dosage: 1.5 G, 4X/DAY
     Route: 042
     Dates: start: 20130102, end: 20130109
  2. TAMIFLU [Suspect]
     Dosage: UNK
     Route: 048
     Dates: start: 20130111, end: 20130116
  3. MENESIT [Suspect]
     Dosage: UNK
     Route: 048
     Dates: start: 20130110, end: 20130125
  4. FINIBAX [Concomitant]
     Dosage: 0.25 G, 1X/DAY
     Route: 042
     Dates: start: 20121219, end: 20121222
  5. ROCEPHIN [Concomitant]
     Dosage: 1 G, 1X/DAY
     Route: 042
     Dates: start: 20121228, end: 20130102
  6. DIOVAN [Concomitant]
     Dosage: 40 MG PER DAY
     Route: 048
  7. MUCOSTA [Concomitant]
     Dosage: 100 MG PER DAY
     Route: 048
  8. SOLULACT [Concomitant]
     Dosage: UNK
  9. AMIGRAND [Concomitant]
     Dosage: UNK

REACTIONS (4)
  - Tremor [Recovered/Resolved]
  - Musculoskeletal stiffness [Recovered/Resolved]
  - Influenza [Unknown]
  - Parkinsonism [Recovering/Resolving]
